FAERS Safety Report 17472442 (Version 1)
Quarter: 2020Q1

REPORT INFORMATION
  Report Type: Spontaneous
  Country: US (occurrence: US)
  Receive Date: 20200217
  Receipt Date: 20200217
  Transmission Date: 20200409
  Serious: Yes (Hospitalization)
  Sender: FDA-Public Use
  Company Number: None

PATIENT
  Age: 41 Year
  Sex: Female

DRUGS (12)
  1. GABAPENTIN. [Concomitant]
     Active Substance: GABAPENTIN
  2. SPIRONOLACT [Concomitant]
     Active Substance: SPIRONOLACTONE
  3. TALTZ [Suspect]
     Active Substance: IXEKIZUMAB
     Indication: RHEUMATOID ARTHRITIS
     Route: 058
     Dates: start: 20181008
  4. LEVOTHYROXIN [Concomitant]
     Active Substance: LEVOTHYROXINE
  5. NAPROXEN. [Concomitant]
     Active Substance: NAPROXEN
  6. ONDANSERTRON [Concomitant]
  7. OXYCODONE [Concomitant]
     Active Substance: OXYCODONE
  8. VITAMIN D [Concomitant]
     Active Substance: VITAMIN D NOS
  9. DICLOFENAC [Concomitant]
     Active Substance: DICLOFENAC
  10. DILTIAZEM. [Concomitant]
     Active Substance: DILTIAZEM
  11. VENLAFAXINE [Concomitant]
     Active Substance: VENLAFAXINE HYDROCHLORIDE
  12. FOLIC ACID/METHOTREXATE [Concomitant]

REACTIONS (1)
  - Spinal operation [None]

NARRATIVE: CASE EVENT DATE: 20200120
